FAERS Safety Report 18817712 (Version 1)
Quarter: 2021Q1

REPORT INFORMATION
  Report Type: Report from Study
  Country: ZA (occurrence: ZA)
  Receive Date: 20210201
  Receipt Date: 20210201
  Transmission Date: 20210419
  Serious: Yes (Hospitalization)
  Sender: FDA-Public Use
  Company Number: NVSC2021ZA015038

PATIENT
  Sex: Male

DRUGS (6)
  1. SPIRACTIN [Concomitant]
     Indication: PRODUCT USED FOR UNKNOWN INDICATION
     Dosage: 25 MG, QD
     Route: 065
  2. BILOCOR [Concomitant]
     Active Substance: BISOPROLOL FUMARATE
     Indication: PRODUCT USED FOR UNKNOWN INDICATION
     Dosage: 5 MG, QD
     Route: 065
  3. PURESIS [Concomitant]
     Active Substance: FUROSEMIDE
     Indication: PRODUCT USED FOR UNKNOWN INDICATION
     Dosage: 40 MG, BID
     Route: 065
  4. ENTRESTO [Suspect]
     Active Substance: SACUBITRIL\VALSARTAN
     Indication: CARDIAC FAILURE
     Dosage: 100 MG, BID
     Route: 048
  5. XARELTO [Concomitant]
     Active Substance: RIVAROXABAN
     Indication: PRODUCT USED FOR UNKNOWN INDICATION
     Dosage: 20 MG, QD
     Route: 065
  6. CORALAN [Concomitant]
     Active Substance: IVABRADINE HYDROCHLORIDE
     Indication: PRODUCT USED FOR UNKNOWN INDICATION
     Dosage: 5 MG, BID
     Route: 065

REACTIONS (14)
  - Dizziness [Unknown]
  - Joint swelling [Unknown]
  - Pollakiuria [Unknown]
  - Cardiac failure [Unknown]
  - Dyspnoea [Unknown]
  - Orthopnoea [Unknown]
  - Heart rate increased [Unknown]
  - Mood altered [Unknown]
  - Ejection fraction decreased [Unknown]
  - N-terminal prohormone brain natriuretic peptide increased [Unknown]
  - Congestive cardiomyopathy [Unknown]
  - Abdominal distension [Unknown]
  - Fatigue [Unknown]
  - Peripheral swelling [Unknown]
